FAERS Safety Report 6255434-X (Version None)
Quarter: 2009Q3

REPORT INFORMATION
  Report Type: 
  Country: None (occurrence: None)
  Receive Date: 20090702
  Receipt Date: 20090625
  Transmission Date: 20100115
  Serious: Yes (Other)
  Sender: FDA-Public Use
  Company Number: PHHO2007BR06192

PATIENT
  Age: 62 Year
  Sex: Female

DRUGS (6)
  1. TASIGNA [Suspect]
     Indication: CHRONIC MYELOID LEUKAEMIA
     Dosage: 800 MG, QD
     Dates: start: 20061010, end: 20061129
  2. TASIGNA [Suspect]
     Dosage: UNK
     Dates: start: 20061130, end: 20070109
  3. TASIGNA [Suspect]
     Dosage: 400 MG, QD
     Dates: start: 20070110, end: 20070124
  4. TASIGNA [Suspect]
     Dosage: 1200 MG, QD
     Dates: start: 20070125, end: 20070128
  5. TASIGNA [Suspect]
     Dosage: UNK
     Dates: start: 20070129, end: 20070131
  6. TASIGNA [Suspect]
     Dosage: 1800 MG, QD
     Dates: start: 20070201, end: 20070222

REACTIONS (17)
  - AGRANULOCYTOSIS [None]
  - ANAEMIA [None]
  - ASTHENIA [None]
  - BLOOD BILIRUBIN INCREASED [None]
  - CYTOMEGALOVIRUS INFECTION [None]
  - EPSTEIN-BARR VIRUS TEST POSITIVE [None]
  - EYE PAIN [None]
  - HEADACHE [None]
  - LEUKOCYTOCLASTIC VASCULITIS [None]
  - MALAISE [None]
  - MYALGIA [None]
  - PANCYTOPENIA [None]
  - PYREXIA [None]
  - RASH [None]
  - RED BLOOD CELL SEDIMENTATION RATE INCREASED [None]
  - SINUS TACHYCARDIA [None]
  - TOXOPLASMOSIS [None]
